FAERS Safety Report 9418841 (Version 2)
Quarter: 2013Q4

REPORT INFORMATION
  Report Type: Spontaneous
  Country: JP (occurrence: JP)
  Receive Date: 20130725
  Receipt Date: 20131003
  Transmission Date: 20140711
  Serious: Yes (Hospitalization)
  Sender: FDA-Public Use
  Company Number: JP-JNJFOC-20130710505

PATIENT
  Age: 81 Year
  Sex: Male

DRUGS (9)
  1. XARELTO [Suspect]
     Indication: THROMBOSIS PROPHYLAXIS
     Route: 048
     Dates: start: 20130622
  2. XARELTO [Suspect]
     Indication: THROMBOSIS PROPHYLAXIS
     Route: 048
     Dates: start: 20130610, end: 20130620
  3. AMLODIPINE [Concomitant]
     Indication: HYPERURICAEMIA
     Route: 048
  4. EXFORGE [Concomitant]
     Indication: HYPERTENSION
  5. FENOFIBRATE [Concomitant]
     Indication: DYSLIPIDAEMIA
     Route: 048
  6. FORSENID [Concomitant]
     Indication: CONSTIPATION
     Route: 048
  7. POLYFUL [Concomitant]
     Indication: ABNORMAL FAECES
     Route: 048
  8. RYTHMODAN [Concomitant]
     Indication: SUPRAVENTRICULAR TACHYCARDIA
     Route: 048
  9. ALLOZYM [Concomitant]
     Indication: HYPERURICAEMIA
     Route: 048

REACTIONS (2)
  - Colitis ischaemic [Recovered/Resolved]
  - Hepatic enzyme increased [Unknown]
